FAERS Safety Report 6779639-4 (Version None)
Quarter: 2010Q2

REPORT INFORMATION
  Report Type: 
  Country: None (occurrence: None)
  Receive Date: 20100618
  Receipt Date: 20100609
  Transmission Date: 20101027
  Serious: Yes (Hospitalization)
  Sender: FDA-Public Use
  Company Number: B0659759A

PATIENT
  Sex: Male

DRUGS (3)
  1. ZELITREX [Suspect]
     Route: 048
     Dates: start: 20091116, end: 20091124
  2. VALIUM [Suspect]
     Indication: DRUG USE FOR UNKNOWN INDICATION
     Route: 048
     Dates: start: 20091120, end: 20091124
  3. AUGMENTIN '125' [Concomitant]
     Dates: start: 20091201

REACTIONS (5)
  - ABNORMAL BEHAVIOUR [None]
  - AGITATION [None]
  - CIRCADIAN RHYTHM SLEEP DISORDER [None]
  - CONFUSIONAL STATE [None]
  - DISORIENTATION [None]
